FAERS Safety Report 20458088 (Version 1)
Quarter: 2022Q1

REPORT INFORMATION
  Report Type: Other
  Country: FR (occurrence: FR)
  Receive Date: 20220211
  Receipt Date: 20220211
  Transmission Date: 20220423
  Serious: Yes (Other)
  Sender: FDA-Public Use
  Company Number: FR-CELLTRION INC.-2022FR001270

PATIENT

DRUGS (1)
  1. RITUXIMAB [Suspect]
     Active Substance: RITUXIMAB
     Indication: Renal transplant
     Dosage: UNK
     Route: 065
     Dates: start: 202010

REACTIONS (2)
  - Anaphylactic reaction [Unknown]
  - Off label use [Unknown]
